FAERS Safety Report 7233748 (Version 2)
Quarter: 2014Q1

REPORT INFORMATION
  Report Type: Spontaneous
  Country: US (occurrence: US)
  Receive Date: 20091230
  Receipt Date: 20140128
  Transmission Date: 20141002
  Serious: Yes (Hospitalization, Other)
  Sender: FDA-Public Use
  Company Number: US-JNJFOC-20091206740

PATIENT
  Age: 46 Year
  Sex: Male
  Weight: 83.92 kg

DRUGS (4)
  1. DURAGESIC [Suspect]
     Indication: PAIN
     Route: 062
     Dates: start: 1999, end: 20091218
  2. DURAGESIC [Suspect]
     Indication: PAIN
     Route: 062
     Dates: start: 20091218
  3. CYMBALTA [Concomitant]
     Indication: MOOD SWINGS
     Route: 048
  4. PERCOCET [Concomitant]
     Indication: PAIN
     Dosage: UP TO 6 AS NEEDED
     Route: 048

REACTIONS (3)
  - Attention deficit/hyperactivity disorder [Not Recovered/Not Resolved]
  - Drug ineffective [Not Recovered/Not Resolved]
  - Product packaging quantity issue [Unknown]
